FAERS Safety Report 13601870 (Version 2)
Quarter: 2017Q2

REPORT INFORMATION
  Report Type: Spontaneous
  Country: US (occurrence: US)
  Receive Date: 20170601
  Receipt Date: 20170623
  Transmission Date: 20170830
  Serious: Yes (Hospitalization)
  Sender: FDA-Public Use
  Company Number: US-BRISTOL-MYERS SQUIBB COMPANY-BMS-2017-046942

PATIENT
  Sex: Female

DRUGS (1)
  1. ELIQUIS [Suspect]
     Active Substance: APIXABAN
     Indication: PRODUCT USED FOR UNKNOWN INDICATION
     Dosage: 5 MG, BID
     Route: 048

REACTIONS (9)
  - Weight decreased [Unknown]
  - Therapeutic aspiration [Unknown]
  - Constipation [Unknown]
  - Mass [Unknown]
  - Haemorrhoids [Unknown]
  - Fatigue [Recovering/Resolving]
  - Aphthous ulcer [Unknown]
  - Viral upper respiratory tract infection [Unknown]
  - Hyperhidrosis [Recovering/Resolving]
